FAERS Safety Report 21800807 (Version 1)
Quarter: 2022Q4

REPORT INFORMATION
  Report Type: Spontaneous
  Country: US (occurrence: None)
  Receive Date: 20221229
  Receipt Date: 20221229
  Transmission Date: 20230113
  Serious: Yes (Other)
  Sender: FDA-Public Use
  Company Number: None

PATIENT
  Age: 59 Year
  Sex: Male
  Weight: 101.2 kg

DRUGS (4)
  1. HUMIRA [Suspect]
     Active Substance: ADALIMUMAB
     Indication: Psoriasis
     Dosage: FREQUENCY : EVERY OTHER WEEK;?
     Route: 058
     Dates: end: 20221222
  2. CLOBETASOL [Concomitant]
     Active Substance: CLOBETASOL
  3. KETOCONAZOLE [Concomitant]
     Active Substance: KETOCONAZOLE
  4. Bleph- 10 10% ophthalmic solution [Concomitant]

REACTIONS (1)
  - Bradycardia [None]

NARRATIVE: CASE EVENT DATE: 20221222
